FAERS Safety Report 5170523-9 (Version None)
Quarter: 2006Q4

REPORT INFORMATION
  Report Type: 
  Country: None (occurrence: None)
  Receive Date: 20061205
  Receipt Date: 20061120
  Transmission Date: 20070319
  Serious: Yes (Other)
  Sender: FDA-Public Use
  Company Number: 2006144093

PATIENT
  Age: 60 Year
  Sex: Male

DRUGS (3)
  1. VFEND [Suspect]
     Indication: ASPERGILLOMA
     Dates: start: 20060801
  2. VFEND [Suspect]
     Indication: ASPERGILLOSIS
     Dates: start: 20060801
  3. CANCIDAS [Concomitant]

REACTIONS (2)
  - HYPOKINESIA [None]
  - VENTRICULAR EXTRASYSTOLES [None]
